FAERS Safety Report 9721571 (Version 3)
Quarter: 2014Q1

REPORT INFORMATION
  Report Type: Spontaneous
  Country: US (occurrence: US)
  Receive Date: 20131201
  Receipt Date: 20140212
  Transmission Date: 20141002
  Serious: Yes (Disabling)
  Sender: FDA-Public Use
  Company Number: US-009507513-1311USA012042

PATIENT
  Age: 26 Year
  Sex: Female
  Weight: 48.98 kg

DRUGS (1)
  1. NEXPLANON [Suspect]
     Indication: CONTRACEPTION
     Dosage: UNK
     Route: 059
     Dates: start: 20131101

REACTIONS (5)
  - Arthralgia [Recovered/Resolved]
  - Incision site pain [Recovering/Resolving]
  - Injection site haematoma [Recovered/Resolved]
  - Pain in extremity [Recovering/Resolving]
  - Paraesthesia [Recovered/Resolved]
